FAERS Safety Report 17902878 (Version 2)
Quarter: 2020Q2

REPORT INFORMATION
  Report Type: Spontaneous
  Country: US (occurrence: US)
  Receive Date: 20200616
  Receipt Date: 20200623
  Transmission Date: 20200714
  Serious: No
  Sender: FDA-Public Use
  Company Number: US-ELI_LILLY_AND_COMPANY-US202006005773

PATIENT
  Age: 50 Year
  Sex: Male

DRUGS (1)
  1. TALTZ [Suspect]
     Active Substance: IXEKIZUMAB
     Indication: PSORIASIS
     Dosage: 80 MG, UNKNOWN
     Route: 058
     Dates: start: 20171222, end: 201912

REACTIONS (7)
  - Rectal polyp [Recovered/Resolved]
  - Pain [Recovered/Resolved]
  - Rectal abscess [Recovered/Resolved]
  - Malaise [Unknown]
  - Escherichia infection [Recovered/Resolved]
  - Infection [Unknown]
  - Rectal fissure [Recovered/Resolved]

NARRATIVE: CASE EVENT DATE: 201912
